FAERS Safety Report 8505463 (Version 2)
Quarter: 2012Q4

REPORT INFORMATION
  Report Type: Report from Study
  Country: CA (occurrence: CA)
  Receive Date: 20120412
  Receipt Date: 20121203
  Transmission Date: 20130627
  Serious: Yes (Hospitalization)
  Sender: FDA-Public Use
  Company Number: CA-BRISTOL-MYERS SQUIBB COMPANY-16400632

PATIENT
  Age: 61 Year
  Sex: Male

DRUGS (4)
  1. IPILIMUMAB [Suspect]
     Indication: MALIGNANT MELANOMA
     Dosage: No of course:04
     Route: 042
     Dates: start: 20111012, end: 20111214
  2. TYLENOL [Concomitant]
     Dosage: Strength:500mg
     Route: 048
     Dates: start: 2010
  3. IBUPROFEN [Concomitant]
     Dosage: Q4H
     Route: 048
     Dates: start: 2010
  4. SYNTHROID [Concomitant]
     Route: 048
     Dates: start: 20111217

REACTIONS (1)
  - Colitis microscopic [Recovered/Resolved]
